FAERS Safety Report 12973064 (Version 1)
Quarter: 2016Q4

REPORT INFORMATION
  Report Type: Spontaneous
  Country: US (occurrence: US)
  Receive Date: 20161124
  Receipt Date: 20161124
  Transmission Date: 20170207
  Serious: Yes (Other)
  Sender: FDA-Public Use
  Company Number: US-AMGEN-USASP2016162871

PATIENT
  Age: 73 Year
  Sex: Female

DRUGS (3)
  1. ENBREL [Suspect]
     Active Substance: ETANERCEPT
     Indication: RHEUMATOID ARTHRITIS
     Dosage: 50 MG, QWK
     Route: 065
  2. ENBREL [Suspect]
     Active Substance: ETANERCEPT
     Dosage: 50 MG, UNK
     Route: 065
  3. ENBREL [Suspect]
     Active Substance: ETANERCEPT
     Dosage: 50 MG, EVERY TWO TO TWO AND A HALF WEEKS
     Route: 065

REACTIONS (10)
  - Drug effect decreased [Unknown]
  - Underdose [Unknown]
  - Injection site pain [Unknown]
  - Rheumatoid arthritis [Unknown]
  - Immune system disorder [Unknown]
  - Incorrect product storage [Unknown]
  - Intentional product misuse [Unknown]
  - Drug dose omission [Unknown]
  - Infection susceptibility increased [Unknown]
  - Impaired healing [Unknown]
